FAERS Safety Report 17227644 (Version 2)
Quarter: 2020Q4

REPORT INFORMATION
  Report Type: Report from Study
  Country: IT (occurrence: IT)
  Receive Date: 20200103
  Receipt Date: 20201210
  Transmission Date: 20210113
  Serious: Yes (Other)
  Sender: FDA-Public Use
  Company Number: IT-TEVA-2019-IT-1160421

PATIENT
  Sex: Male

DRUGS (8)
  1. PACLITAXEL. [Suspect]
     Active Substance: PACLITAXEL
     Dosage: 130 MG, UNKNOWN
     Route: 042
     Dates: start: 20180515
  2. PACLITAXEL. [Suspect]
     Active Substance: PACLITAXEL
     Dosage: 130 MG, UNKNOWN
     Route: 042
     Dates: start: 20180216
  3. PACLITAXEL. [Suspect]
     Active Substance: PACLITAXEL
     Dosage: 95 MG, UNKNOWN
     Route: 042
     Dates: start: 20180419
  4. RAMUCIRUMAB [Suspect]
     Active Substance: RAMUCIRUMAB
     Dosage: 400 MG, UNKNOWN
     Route: 042
     Dates: start: 20180308
  5. PACLITAXEL. [Suspect]
     Active Substance: PACLITAXEL
     Indication: GASTRIC CANCER
     Dosage: 100 MG, UNKNOWN
     Route: 042
     Dates: start: 20180522
  6. RAMUCIRUMAB [Suspect]
     Active Substance: RAMUCIRUMAB
     Dosage: UNK, UNKNOWN
     Route: 042
  7. RAMUCIRUMAB [Suspect]
     Active Substance: RAMUCIRUMAB
     Indication: GASTRIC CANCER
     Dosage: 400 MG, UNKNOWN
     Route: 042
     Dates: start: 20180412
  8. PACLITAXEL. [Suspect]
     Active Substance: PACLITAXEL
     Dosage: 95 MG, UNKNOWN
     Route: 042
     Dates: start: 20180529

REACTIONS (2)
  - Vascular device infection [Recovered/Resolved]
  - Neutropenia [Recovered/Resolved]

NARRATIVE: CASE EVENT DATE: 20180315
